FAERS Safety Report 21819936 (Version 1)
Quarter: 2023Q1

REPORT INFORMATION
  Report Type: Report from Study
  Country: US (occurrence: US)
  Receive Date: 20230104
  Receipt Date: 20230104
  Transmission Date: 20230417
  Serious: No
  Sender: FDA-Public Use
  Company Number: US-ABBVIE-4228706

PATIENT
  Age: 65 Year
  Sex: Male

DRUGS (5)
  1. HUMIRA [Suspect]
     Active Substance: ADALIMUMAB
     Indication: Product used for unknown indication
     Dosage: 1ST REGIMEN
     Route: 058
     Dates: end: 2022
  2. HUMIRA [Suspect]
     Active Substance: ADALIMUMAB
     Dosage: 2ND REGIMEN
     Route: 058
     Dates: start: 2022, end: 2022
  3. HUMIRA [Suspect]
     Active Substance: ADALIMUMAB
     Dosage: 3RD REGIMEN,?EVENT ONSET FOR COVID AND RESPIRATORY SYNCYTIAL VIRUS WAS 2022
     Route: 058
     Dates: start: 2022
  4. RINVOQ [Suspect]
     Active Substance: UPADACITINIB
     Indication: Rheumatoid arthritis
     Route: 048
  5. COVID-19 vaccine [Concomitant]
     Indication: COVID-19 immunisation
     Dosage: 1 IN ONCE/BOOSTER DOSE
     Route: 030
     Dates: start: 202211, end: 202211

REACTIONS (2)
  - COVID-19 [Recovered/Resolved]
  - Respiratory syncytial virus infection [Recovered/Resolved]

NARRATIVE: CASE EVENT DATE: 20220601
